FAERS Safety Report 7215132-2 (Version None)
Quarter: 2011Q1

REPORT INFORMATION
  Report Type: 
  Country: None (occurrence: None)
  Receive Date: 20110107
  Receipt Date: 20101020
  Transmission Date: 20110831
  Serious: No
  Sender: FDA-Public Use
  Company Number: A0879573A

PATIENT
  Age: 47 Year
  Sex: Male

DRUGS (4)
  1. LOVAZA [Suspect]
     Dosage: 2G TWICE PER DAY
     Route: 048
     Dates: start: 20100701
  2. SIMVASTATIN [Concomitant]
  3. GLIPIZIDE [Concomitant]
  4. METFORMIN [Concomitant]

REACTIONS (5)
  - KIDNEY INFECTION [None]
  - DIARRHOEA [None]
  - PRODUCT ODOUR ABNORMAL [None]
  - PAIN [None]
  - PRODUCT QUALITY ISSUE [None]
